FAERS Safety Report 15643160 (Version 2)
Quarter: 2018Q4

REPORT INFORMATION
  Report Type: Report from Study
  Country: GB (occurrence: GB)
  Receive Date: 20181121
  Receipt Date: 20181127
  Transmission Date: 20190205
  Serious: Yes (Other)
  Sender: FDA-Public Use
  Company Number: GB-KYOWAKIRIN-2018BKK010019

PATIENT

DRUGS (1)
  1. BUROSUMAB [Suspect]
     Active Substance: BUROSUMAB
     Indication: HEREDITARY HYPOPHOSPHATAEMIC RICKETS
     Dosage: 20 MG, TWO WEEKLY
     Route: 058
     Dates: start: 20180709

REACTIONS (1)
  - Craniosynostosis [Not Recovered/Not Resolved]

NARRATIVE: CASE EVENT DATE: 2018
